FAERS Safety Report 16089468 (Version 1)
Quarter: 2019Q1

REPORT INFORMATION
  Report Type: Spontaneous
  Country: US (occurrence: US)
  Receive Date: 20190319
  Receipt Date: 20190319
  Transmission Date: 20190418
  Serious: No
  Sender: FDA-Public Use
  Company Number: US-SA-2019SA066425

PATIENT

DRUGS (2)
  1. TALIGLUCERASE ALFA [Concomitant]
     Active Substance: TALIGLUCERASE ALFA
  2. CEREZYME [Suspect]
     Active Substance: IMIGLUCERASE
     Dosage: UNK
     Route: 041

REACTIONS (6)
  - Obesity [Unknown]
  - Hypertension [Unknown]
  - Chitotriosidase increased [Unknown]
  - Red cell distribution width increased [Unknown]
  - Tartrate-resistant acid phosphatase increased [Unknown]
  - White blood cell count increased [Unknown]
